FAERS Safety Report 14651341 (Version 1)
Quarter: 2018Q1

REPORT INFORMATION
  Report Type: Spontaneous
  Country: US (occurrence: US)
  Receive Date: 20180316
  Receipt Date: 20180316
  Transmission Date: 20180509
  Serious: No
  Sender: FDA-Public Use
  Company Number: None

PATIENT
  Age: 62 Year
  Sex: Female

DRUGS (1)
  1. LEVOTHYROXINE 175MCG MYLAN PHARMACEUTICALS [Suspect]
     Active Substance: LEVOTHYROXINE
     Dosage: THESE TABLETS HAVE BEEN TAKEN FOR APPROXIMATELY 1 MONTH

REACTIONS (1)
  - Fatigue [None]
